FAERS Safety Report 5418391-1 (Version None)
Quarter: 2007Q3

REPORT INFORMATION
  Report Type: 
  Country: None (occurrence: None)
  Receive Date: 20070817
  Receipt Date: 20070807
  Transmission Date: 20080115
  Serious: Yes (Death)
  Sender: FDA-Public Use
  Company Number: GB-BAXTER-2007BH006886

PATIENT
  Age: 85 Year
  Sex: Female

DRUGS (8)
  1. DEXTROSE 5% [Suspect]
     Indication: DRUG USE FOR UNKNOWN INDICATION
     Dosage: DOSE UNIT:UNKNOWN
     Route: 042
  2. MIXTARD PORK [Suspect]
     Indication: DRUG USE FOR UNKNOWN INDICATION
     Dosage: DOSE UNIT:UNKNOWN
     Route: 042
  3. AMLODIPINE [Concomitant]
  4. ASPIRIN [Concomitant]
  5. HYDROCORTISONE [Concomitant]
  6. LIPITOR [Concomitant]
  7. PANTOPRAZOLE SODIUM [Concomitant]
  8. LEVOTHYROXINE SODIUM [Concomitant]

REACTIONS (2)
  - MEDICATION ERROR [None]
  - NEUROGLYCOPENIA [None]
